FAERS Safety Report 5167303-7 (Version None)
Quarter: 2006Q4

REPORT INFORMATION
  Report Type: 
  Country: None (occurrence: None)
  Receive Date: 20061130
  Receipt Date: 20061117
  Transmission Date: 20070319
  Serious: Yes (Hospitalization)
  Sender: FDA-Public Use
  Company Number: SPI200600192

PATIENT
  Age: 69 Year
  Sex: Female
  Weight: 58.5 kg

DRUGS (3)
  1. AMITIZA [Suspect]
     Indication: IRRITABLE BOWEL SYNDROME
     Dosage: 24 MCG, BID, ORAL
     Route: 048
     Dates: start: 20060901
  2. ZEGERID [Concomitant]
  3. ASACOL [Concomitant]

REACTIONS (1)
  - BRONCHOPNEUMONIA [None]
